FAERS Safety Report 9228842 (Version 2)
Quarter: 2013Q2

REPORT INFORMATION
  Report Type: Report from Study
  Country: US (occurrence: US)
  Receive Date: 20130412
  Receipt Date: 20130418
  Transmission Date: 20140414
  Serious: Yes (Hospitalization)
  Sender: FDA-Public Use
  Company Number: US-TEVA-396976USA

PATIENT
  Age: 69 Year
  Sex: Male

DRUGS (21)
  1. TREANDA [Suspect]
     Indication: PLASMA CELL MYELOMA
     Dosage: DAYS 1-2
     Route: 042
     Dates: start: 20120419, end: 20120713
  2. TREANDA [Suspect]
     Dosage: DAYS 1-2
     Route: 042
     Dates: start: 20120816, end: 20120914
  3. LENALIDOMIDE [Suspect]
     Indication: PLASMA CELL MYELOMA
     Dates: start: 20120419, end: 20120816
  4. LENALIDOMIDE [Suspect]
     Dates: start: 20120816
  5. DEXAMETHASONE [Suspect]
     Indication: PLASMA CELL MYELOMA
     Dates: start: 20120419
  6. DEXAMETHASONE [Suspect]
  7. ASPIRIN [Concomitant]
     Dates: start: 20121212
  8. OMEPRAZOLE [Concomitant]
     Dates: start: 20091118
  9. CALCIUM W/VITAMIN D NOS [Concomitant]
     Dates: start: 20091118
  10. MULTIVITAMIN [Concomitant]
     Dates: start: 20091118
  11. SIMVASTATIN [Concomitant]
     Dates: start: 20091118
  12. VITAMIN C [Concomitant]
     Dates: start: 20091118
  13. NADOLOL [Concomitant]
     Dates: start: 20091118
  14. SYMBICORT [Concomitant]
     Dates: start: 20091118
  15. AMLODIPINE [Concomitant]
     Dates: start: 20100105
  16. ALBUTEROL W/IPRATROPIUM [Concomitant]
     Dates: start: 20100622
  17. ACETAMINOPHEN [Concomitant]
     Dates: start: 20110524
  18. GLUCOSAMINE SULFATE W/CHONDROITIN [Concomitant]
     Dates: start: 20111227
  19. CETIRIZINE [Concomitant]
     Dates: start: 20120413
  20. PROCHLORPERAZINE [Concomitant]
     Dates: start: 20120419
  21. TRIMETHOPRIM SULFAMETHOX [Concomitant]
     Dates: start: 20120517

REACTIONS (3)
  - Thrombosis [Recovered/Resolved with Sequelae]
  - Embolism [Recovered/Resolved with Sequelae]
  - Chronic obstructive pulmonary disease [Recovered/Resolved]
